FAERS Safety Report 7955070-0 (Version None)
Quarter: 2011Q4

REPORT INFORMATION
  Report Type: 
  Country: None (occurrence: None)
  Receive Date: 20111202
  Receipt Date: 20111125
  Transmission Date: 20120403
  Serious: Yes (Hospitalization)
  Sender: FDA-Public Use
  Company Number: DE-ROCHE-1017164

PATIENT
  Age: 64 Year
  Sex: Female

DRUGS (11)
  1. CERTOLIZUMAB PEGOL [Suspect]
     Indication: RHEUMATOID ARTHRITIS
     Route: 042
     Dates: start: 20100901, end: 20101001
  2. ACTEMRA [Suspect]
     Indication: RHEUMATOID ARTHRITIS
     Dates: start: 20090301, end: 20090501
  3. ABATACEPT [Suspect]
     Indication: RHEUMATOID ARTHRITIS
     Dates: start: 20090201, end: 20090301
  4. METHOTREXATE [Suspect]
     Route: 051
     Dates: start: 20090601, end: 20100201
  5. PREDNISONE TAB [Concomitant]
  6. INFLIXIMAB [Suspect]
     Indication: RHEUMATOID ARTHRITIS
     Route: 042
     Dates: start: 20091101, end: 20100601
  7. METHOTREXATE [Suspect]
     Indication: RHEUMATOID ARTHRITIS
     Route: 048
     Dates: start: 20040901, end: 20090501
  8. ADALIMUMAB [Suspect]
     Indication: RHEUMATOID ARTHRITIS
     Dates: start: 20090501, end: 20091101
  9. METHOTREXATE [Suspect]
     Route: 058
     Dates: start: 20100901, end: 20101001
  10. FOLSAN [Concomitant]
  11. ARCOXIA [Concomitant]

REACTIONS (3)
  - URINARY TRACT INFECTION [None]
  - LUNG ADENOCARCINOMA [None]
  - VENOUS THROMBOSIS LIMB [None]
